FAERS Safety Report 5703232-5 (Version None)
Quarter: 2008Q2

REPORT INFORMATION
  Report Type: 
  Country: None (occurrence: None)
  Receive Date: 20080411
  Receipt Date: 20080318
  Transmission Date: 20081010
  Serious: No
  Sender: FDA-Public Use
  Company Number: US-BAYER-200817608NA

PATIENT
  Sex: Female

DRUGS (1)
  1. YAZ [Suspect]
     Indication: UNEVALUABLE EVENT
     Route: 048
     Dates: start: 20080312

REACTIONS (4)
  - BREAST ENLARGEMENT [None]
  - INCREASED TENDENCY TO BRUISE [None]
  - NAUSEA [None]
  - RASH [None]
